FAERS Safety Report 6604539-X (Version None)
Quarter: 2010Q1

REPORT INFORMATION
  Report Type: 
  Country: None (occurrence: None)
  Receive Date: 20100226
  Receipt Date: 20091117
  Transmission Date: 20100710
  Serious: No
  Sender: FDA-Public Use
  Company Number: A0817460A

PATIENT
  Age: 46 Year
  Sex: Female

DRUGS (8)
  1. LAMOTRIGINE [Suspect]
     Indication: BIPOLAR DISORDER
     Dosage: 100MG TWICE PER DAY
     Route: 048
     Dates: start: 20091001
  2. SYNTHROID [Concomitant]
  3. ALLEGRA [Concomitant]
  4. HYDROCHLOROTHIAZIDE [Concomitant]
  5. KLONOPIN [Concomitant]
  6. SOMA [Concomitant]
  7. PLAQUENIL [Concomitant]
  8. LAMICTAL CD [Concomitant]
     Indication: BIPOLAR DISORDER
     Dosage: 100MG TWICE PER DAY
     Route: 048
     Dates: start: 20080101, end: 20091001

REACTIONS (1)
  - RASH ERYTHEMATOUS [None]
